FAERS Safety Report 23148817 (Version 1)
Quarter: 2023Q4

REPORT INFORMATION
  Report Type: Spontaneous
  Country: US (occurrence: None)
  Receive Date: 20231103
  Receipt Date: 20231103
  Transmission Date: 20240109
  Serious: No
  Sender: FDA-Public Use
  Company Number: None

PATIENT
  Age: 59 Year
  Sex: Female

DRUGS (11)
  1. TALTZ [Suspect]
     Active Substance: IXEKIZUMAB
     Indication: Psoriatic arthropathy
     Dosage: FREQUENCY : EVERY OTHER WEEK;?
     Route: 058
     Dates: start: 20221130, end: 20231030
  2. TALTZ [Suspect]
     Active Substance: IXEKIZUMAB
     Indication: Psoriasis
  3. Trospium 20 mg tablet [Concomitant]
  4. Alprazolam 2 mg [Concomitant]
  5. Clobetasol Prop 0.05% cream [Concomitant]
  6. FLUCONAZOLE [Concomitant]
     Active Substance: FLUCONAZOLE
  7. IBUPROFEN [Concomitant]
     Active Substance: IBUPROFEN
  8. JARDIANCE [Concomitant]
     Active Substance: EMPAGLIFLOZIN
  9. OMEPRAZOLE [Concomitant]
     Active Substance: OMEPRAZOLE
  10. OXYBUTYNIN [Concomitant]
     Active Substance: OXYBUTYNIN
  11. Vitamin D3 2000 units capsules [Concomitant]

REACTIONS (4)
  - Therapy cessation [None]
  - Decreased appetite [None]
  - Immune system disorder [None]
  - Malaise [None]

NARRATIVE: CASE EVENT DATE: 20230901
